FAERS Safety Report 4773149-1 (Version None)
Quarter: 2005Q3

REPORT INFORMATION
  Report Type: 
  Country: None (occurrence: None)
  Receive Date: 20050915
  Receipt Date: 20050915
  Transmission Date: 20060218
  Serious: Yes (Hospitalization)
  Sender: FDA-Public Use
  Company Number: None

PATIENT
  Sex: Male
  Weight: 77.6 kg

DRUGS (9)
  1. DAUNORUBICIN HCL [Suspect]
     Indication: ACUTE LYMPHOCYTIC LEUKAEMIA
     Dosage: SEE IMAGE
     Route: 042
     Dates: end: 20050830
  2. DAUNORUBICIN HCL [Suspect]
     Indication: ACUTE LYMPHOCYTIC LEUKAEMIA
     Dosage: SEE IMAGE
     Route: 042
     Dates: start: 20050809
  3. VINCRISTINE SULFATE [Suspect]
     Dosage: SEE IMAGE
     Route: 042
     Dates: end: 20050830
  4. VINCRISTINE SULFATE [Suspect]
     Dosage: SEE IMAGE
     Route: 042
     Dates: start: 20050809
  5. PREDNISONE [Suspect]
     Dosage: SEE IMAGE
     Route: 048
     Dates: end: 20050905
  6. PREDNISONE [Suspect]
     Dosage: SEE IMAGE
     Route: 048
     Dates: start: 20050809
  7. L-ASPARAGINASE [Suspect]
     Dosage: SEE IMAGE
     Route: 030
     Dates: start: 20050809
  8. METHOTREXATE [Suspect]
     Dosage: SEE IMAGE
     Route: 037
     Dates: end: 20050823
  9. METHOTREXATE [Suspect]
     Dosage: SEE IMAGE
     Route: 037
     Dates: start: 20050809

REACTIONS (13)
  - BLOOD ALKALINE PHOSPHATASE INCREASED [None]
  - BLOOD BILIRUBIN INCREASED [None]
  - CHOLELITHIASIS [None]
  - COMPUTERISED TOMOGRAM ABNORMAL [None]
  - EJECTION FRACTION DECREASED [None]
  - HEMIPARESIS [None]
  - HEPATOSPLENIC CANDIDIASIS [None]
  - LUNG CONSOLIDATION [None]
  - LUNG INFECTION [None]
  - OEDEMA PERIPHERAL [None]
  - PLEURAL EFFUSION [None]
  - PNEUMONITIS [None]
  - PULMONARY CAVITATION [None]
